FAERS Safety Report 8130166-1 (Version None)
Quarter: 2012Q1

REPORT INFORMATION
  Report Type: 
  Country: None (occurrence: None)
  Receive Date: 20120210
  Receipt Date: 20120202
  Transmission Date: 20120608
  Serious: Yes (Hospitalization, Other)
  Sender: FDA-Public Use
  Company Number: US-ELI_LILLY_AND_COMPANY-US201110004526

PATIENT
  Weight: 97.959 kg

DRUGS (3)
  1. BYETTA [Suspect]
     Dosage: UNK
     Dates: start: 20051217, end: 20070101
  2. VYTORIN [Concomitant]
  3. GLIMEPIRIDE [Concomitant]
     Indication: DIABETES MELLITUS

REACTIONS (2)
  - PANCREATITIS [None]
  - GALLBLADDER DISORDER [None]
